FAERS Safety Report 21466204 (Version 1)
Quarter: 2022Q4

REPORT INFORMATION
  Report Type: Spontaneous
  Country: ES (occurrence: ES)
  Receive Date: 20221017
  Receipt Date: 20221017
  Transmission Date: 20230113
  Serious: Yes (Hospitalization)
  Sender: FDA-Public Use
  Company Number: ES-STRIDES ARCOLAB LIMITED-2022SP013403

PATIENT
  Age: 65 Year
  Sex: Male
  Weight: 68 kg

DRUGS (25)
  1. DOXORUBICIN [Suspect]
     Active Substance: DOXORUBICIN
     Indication: Mantle cell lymphoma stage III
     Dosage: 50 MILLIGRAM/SQ. METER (ON DAY 1 (R-CHOP REGIMEN)
     Route: 065
  2. DOXORUBICIN [Suspect]
     Active Substance: DOXORUBICIN
     Dosage: UNK, EXTENDED TO SIX CYCLES
     Route: 065
  3. DEXAMETHASONE [Suspect]
     Active Substance: DEXAMETHASONE
     Indication: Mantle cell lymphoma stage III
     Dosage: 20 MILLIGRAM; ON DAY 1 (R-DHAP REGIMEN), EVERY 12H
     Route: 065
  4. CISPLATIN [Suspect]
     Active Substance: CISPLATIN
     Indication: Mantle cell lymphoma stage III
     Dosage: 50 MILLIGRAM/SQ. METER; ON DAY 1 (R-DHAP REGIMEN)
     Route: 065
  5. PREDNISOLONE [Suspect]
     Active Substance: PREDNISOLONE
     Indication: Mantle cell lymphoma stage III
     Dosage: 60 MILLIGRAM (ON DAYS 1-5 FOR 3 CYCLES)
     Route: 065
  6. PREDNISOLONE [Suspect]
     Active Substance: PREDNISOLONE
     Indication: Tonsillar hypertrophy
     Dosage: 1 MILLIGRAM/KILOGRAM PER DAY
     Route: 048
  7. PREDNISOLONE [Suspect]
     Active Substance: PREDNISOLONE
     Dosage: UNK, EXTENDED TO SIX CYCLES
     Route: 065
  8. ETOPOSIDE [Suspect]
     Active Substance: ETOPOSIDE
     Indication: Mantle cell lymphoma stage III
     Dosage: UNK
     Route: 065
  9. RITUXIMAB [Suspect]
     Active Substance: RITUXIMAB
     Indication: Mantle cell lymphoma stage III
     Dosage: 375 MILLIGRAM/SQ. METER; DAY 1 (R-CHOP AND R-DHAP REGIMEN)
     Route: 065
  10. RITUXIMAB [Suspect]
     Active Substance: RITUXIMAB
     Dosage: 375 MILLIGRAM/SQ. METER; DAY 1 (R-CHOP AND R-DHAP REGIMEN)
     Route: 065
  11. RITUXIMAB [Suspect]
     Active Substance: RITUXIMAB
     Dosage: UNK; MAINTENANCE THERAPY
     Route: 065
  12. RITUXIMAB [Suspect]
     Active Substance: RITUXIMAB
     Dosage: UNK, EXTENDED TO SIX CYCLES
     Route: 065
  13. VINCRISTINE [Suspect]
     Active Substance: VINCRISTINE
     Indication: Mantle cell lymphoma stage III
     Dosage: 1.4 MILLIGRAM/SQ. METER; ON DAY 1 (R-CHOP REGIMEN)
     Route: 065
  14. VINCRISTINE [Suspect]
     Active Substance: VINCRISTINE
     Dosage: UNK, EXTENDED TO SIX CYCLES
     Route: 065
  15. CYTARABINE [Suspect]
     Active Substance: CYTARABINE
     Indication: Mantle cell lymphoma stage III
     Dosage: 2000 MILLIGRAM/SQ. METER, EVERY 12 HRS (ON DAYS 4 AND 5 FOR 3 CYCLES)
     Route: 065
  16. CYTARABINE [Suspect]
     Active Substance: CYTARABINE
     Dosage: 100 MILLIGRAM/SQ. METER ON DAYS 2-5  (LOWER DOSE)
     Route: 065
  17. CYTARABINE [Suspect]
     Active Substance: CYTARABINE
     Dosage: 2000 MILLIGRAM/SQ. METER, EVERY 12 HRS (FULL DOSE)
     Route: 065
  18. CYCLOPHOSPHAMIDE [Suspect]
     Active Substance: CYCLOPHOSPHAMIDE
     Indication: Mantle cell lymphoma stage III
     Dosage: 750 MILLIGRAM/SQ. METER; ON DAY 1 (R-CHOP REGIMEN)
     Route: 065
  19. CYCLOPHOSPHAMIDE [Suspect]
     Active Substance: CYCLOPHOSPHAMIDE
     Dosage: UNK, EXTENDED TO SIX CYCLES
     Route: 065
  20. METHOTREXATE [Concomitant]
     Active Substance: METHOTREXATE
     Indication: Mantle cell lymphoma stage III
     Dosage: UNK
     Route: 037
  21. PIPERACILLIN SODIUM\TAZOBACTAM SODIUM [Concomitant]
     Active Substance: PIPERACILLIN SODIUM\TAZOBACTAM SODIUM
     Indication: Antibiotic therapy
     Dosage: UNK
     Route: 065
  22. AMIKACIN [Concomitant]
     Active Substance: AMIKACIN
     Indication: Antibiotic therapy
     Dosage: UNK
     Route: 065
  23. BETAHISTINE [Concomitant]
     Active Substance: BETAHISTINE
     Indication: Antibiotic therapy
     Dosage: UNK
     Route: 065
  24. SULPIRIDE [Concomitant]
     Active Substance: SULPIRIDE
     Indication: Antibiotic therapy
     Dosage: UNK
     Route: 065
  25. CIPROFLOXACIN [Concomitant]
     Active Substance: CIPROFLOXACIN
     Indication: Antibiotic therapy
     Dosage: UNK
     Route: 065

REACTIONS (2)
  - Cerebellar syndrome [Recovered/Resolved]
  - Off label use [Unknown]
